FAERS Safety Report 5472923-6 (Version None)
Quarter: 2007Q4

REPORT INFORMATION
  Report Type: 
  Country: None (occurrence: None)
  Receive Date: 20071001
  Receipt Date: 20071001
  Transmission Date: 20080405
  Serious: Yes (Death)
  Sender: FDA-Public Use
  Company Number: B0488832A

PATIENT
  Age: 16 Year
  Sex: Male

DRUGS (4)
  1. PAXIL [Suspect]
     Indication: DEPRESSION
     Dosage: 10MG TWICE PER DAY
     Route: 048
     Dates: start: 20070214, end: 20070919
  2. ZOLPIDEM [Concomitant]
     Dosage: 10MG PER DAY
     Route: 048
  3. SEROQUEL [Concomitant]
     Dosage: 100MG PER DAY
     Route: 048
  4. DEPAKENE [Concomitant]
     Dosage: 400MG PER DAY
     Route: 048

REACTIONS (1)
  - COMPLETED SUICIDE [None]
